FAERS Safety Report 4364509-1 (Version None)
Quarter: 2004Q2

REPORT INFORMATION
  Report Type: 
  Country: None (occurrence: None)
  Receive Date: 20040521
  Receipt Date: 20040512
  Transmission Date: 20050107
  Serious: Yes (Hospitalization, Other)
  Sender: FDA-Public Use
  Company Number: US-JNJFOC-20040502934

PATIENT
  Age: 55 Year
  Sex: Female
  Weight: 68.0396 kg

DRUGS (9)
  1. TOPAMAX [Suspect]
     Indication: BIPOLAR DISORDER
     Dosage: 300 MG, IN 1 DAY, ORAL
     Route: 048
  2. COLACE (DOCUSATE SODIUM) [Concomitant]
  3. LITHIUM (LITHIUM) [Concomitant]
  4. KLONOPIN [Concomitant]
  5. WELLBUTRIN [Concomitant]
  6. PROZAC [Concomitant]
  7. POTASSIUM (POTASSIUM) [Concomitant]
  8. LIPITOR [Concomitant]
  9. DITROPAN [Concomitant]

REACTIONS (3)
  - ANOREXIA [None]
  - EATING DISORDER [None]
  - WEIGHT DECREASED [None]
